FAERS Safety Report 5951942-7 (Version None)
Quarter: 2008Q4

REPORT INFORMATION
  Report Type: 
  Country: None (occurrence: None)
  Receive Date: 20081113
  Receipt Date: 20070920
  Transmission Date: 20090506
  Serious: No
  Sender: FDA-Public Use
  Company Number: A0683328A

PATIENT
  Age: 86 Year
  Sex: Female

DRUGS (5)
  1. COREG [Suspect]
     Dosage: 3.125MG VARIABLE DOSE
     Route: 048
     Dates: start: 20050101
  2. EFFEXOR [Concomitant]
  3. LIPITOR [Concomitant]
  4. CHROMIUM [Concomitant]
  5. FISH OIL [Concomitant]

REACTIONS (1)
  - ABNORMAL DREAMS [None]
